FAERS Safety Report 9923955 (Version 2)
Quarter: 2014Q1

REPORT INFORMATION
  Report Type: Report from Study
  Country: NL (occurrence: NL)
  Receive Date: 20140225
  Receipt Date: 20140225
  Transmission Date: 20141002
  Serious: Yes (Other)
  Sender: FDA-Public Use
  Company Number: NL-ABBVIE-11P-114-0881544-00

PATIENT
  Age: 37 Year
  Sex: Female
  Weight: 78 kg

DRUGS (2)
  1. LUCRIN DEPOT 11.25 MG [Suspect]
     Indication: BREAST CANCER FEMALE
     Route: 058
     Dates: start: 20110114, end: 201210
  2. TAMOXIFEN [Concomitant]
     Indication: BREAST CANCER FEMALE
     Route: 048
     Dates: start: 201101, end: 201110

REACTIONS (13)
  - Lymphomatoid papulosis [Recovered/Resolved]
  - Lymphomatoid papulosis [Not Recovered/Not Resolved]
  - Hot flush [Not Recovered/Not Resolved]
  - Pain of skin [Not Recovered/Not Resolved]
  - Pain in extremity [Not Recovered/Not Resolved]
  - Dry eye [Recovering/Resolving]
  - Mobility decreased [Not Recovered/Not Resolved]
  - Neck pain [Not Recovered/Not Resolved]
  - Musculoskeletal pain [Not Recovered/Not Resolved]
  - Tremor [Not Recovered/Not Resolved]
  - Vision blurred [Not Recovered/Not Resolved]
  - Vision blurred [Not Recovered/Not Resolved]
  - Pain [Not Recovered/Not Resolved]
